FAERS Safety Report 17843788 (Version 7)
Quarter: 2020Q3

REPORT INFORMATION
  Report Type: Report from Study
  Country: None (occurrence: US)
  Receive Date: 20200531
  Receipt Date: 20200924
  Transmission Date: 20201103
  Serious: Yes (Hospitalization, Other)
  Sender: FDA-Public Use
  Company Number: US-BIOVITRUM-2020US1379

PATIENT
  Age: 59 Year
  Sex: Male

DRUGS (2)
  1. KINERET [Suspect]
     Active Substance: ANAKINRA
     Indication: GOUT
     Route: 058
     Dates: start: 20191112
  2. KINERET [Suspect]
     Active Substance: ANAKINRA
     Indication: CHRONIC KIDNEY DISEASE
     Route: 058
     Dates: start: 20191113

REACTIONS (10)
  - Blood phosphorus increased [Unknown]
  - Muscular weakness [Unknown]
  - Blood potassium increased [Unknown]
  - Lip and/or oral cavity cancer [Unknown]
  - Thrombosis [Unknown]
  - Device related infection [Unknown]
  - Product dose omission issue [Recovered/Resolved]
  - Off label use [Unknown]
  - Gait disturbance [Unknown]
  - Back injury [Unknown]

NARRATIVE: CASE EVENT DATE: 20191113
